FAERS Safety Report 6059901-3 (Version None)
Quarter: 2009Q1

REPORT INFORMATION
  Report Type: 
  Country: None (occurrence: None)
  Receive Date: 20090130
  Receipt Date: 20081218
  Transmission Date: 20090719
  Serious: No
  Sender: FDA-Public Use
  Company Number: US-ABBOTT-08P-163-0493775-00

PATIENT
  Sex: Female
  Weight: 22.7 kg

DRUGS (3)
  1. LUPRON DEPOT [Suspect]
     Indication: GROWTH RETARDATION
     Route: 030
     Dates: start: 20080401
  2. DEPAKOTE [Concomitant]
     Indication: CONVULSION
     Route: 048
  3. CLONAZEPAM [Concomitant]
     Indication: CONVULSION
     Route: 048

REACTIONS (3)
  - INJECTION SITE DISCHARGE [None]
  - INJECTION SITE ERYTHEMA [None]
  - INJECTION SITE SWELLING [None]
